FAERS Safety Report 4295528-1 (Version None)
Quarter: 2004Q1

REPORT INFORMATION
  Report Type: 
  Country: None (occurrence: None)
  Receive Date: 20040212
  Receipt Date: 20040205
  Transmission Date: 20041129
  Serious: Yes (Hospitalization, Other)
  Sender: FDA-Public Use
  Company Number: A0357829A

PATIENT
  Age: 30 Year
  Sex: Female

DRUGS (12)
  1. PAXIL [Suspect]
     Indication: ANXIETY
     Dosage: SEE DOSAGE TEXT/ORAL
     Route: 048
     Dates: start: 19970618
  2. CLONAZEPAM [Concomitant]
  3. PHENOXYMETHYLPENICILLIN [Concomitant]
  4. TYLENOL W/ CODEINE [Concomitant]
  5. IBUPROFEN [Concomitant]
  6. ZOLPIDEM TARTRATE [Concomitant]
  7. ALPRAZOLAM [Concomitant]
  8. BUPROPION HYDROCHLORIDE [Concomitant]
  9. FERROUS SULFATE TAB [Concomitant]
  10. SENNOSIDES [Concomitant]
  11. TOPIRMATE [Concomitant]
  12. VENLAFAXINE HCL [Concomitant]

REACTIONS (23)
  - ABDOMINAL DISCOMFORT [None]
  - ABORTION SPONTANEOUS [None]
  - AGGRESSION [None]
  - AGITATION [None]
  - ANXIETY [None]
  - CONFUSIONAL STATE [None]
  - CONVULSION [None]
  - DECREASED APPETITE [None]
  - DEPENDENCE [None]
  - DIZZINESS [None]
  - DRUG DEPENDENCE [None]
  - DRUG WITHDRAWAL SYNDROME [None]
  - FEELING ABNORMAL [None]
  - INFLUENZA [None]
  - INSOMNIA [None]
  - MOTOR DYSFUNCTION [None]
  - NAUSEA [None]
  - NIGHTMARE [None]
  - PARAESTHESIA [None]
  - PYREXIA [None]
  - SUICIDAL IDEATION [None]
  - TREMOR [None]
  - VOMITING [None]
